FAERS Safety Report 15668273 (Version 2)
Quarter: 2019Q1

REPORT INFORMATION
  Report Type: Report from Study
  Country: None (occurrence: CA)
  Receive Date: 20181129
  Receipt Date: 20190305
  Transmission Date: 20190417
  Serious: Yes (Other)
  Sender: FDA-Public Use
  Company Number: CA-ABBVIE-18K-028-2571666-00

PATIENT
  Age: 20 Year
  Sex: Male

DRUGS (1)
  1. HUMIRA [Suspect]
     Active Substance: ADALIMUMAB
     Indication: CROHN^S DISEASE
     Route: 058
     Dates: start: 20180706, end: 20190204

REACTIONS (5)
  - Intestinal dilatation [Not Recovered/Not Resolved]
  - Appendicitis [Unknown]
  - Intestinal obstruction [Not Recovered/Not Resolved]
  - Rash [Recovered/Resolved]
  - Abdominal adhesions [Not Recovered/Not Resolved]

NARRATIVE: CASE EVENT DATE: 2018
